FAERS Safety Report 5958193-0 (Version None)
Quarter: 2008Q4

REPORT INFORMATION
  Report Type: 
  Country: None (occurrence: None)
  Receive Date: 20081117
  Receipt Date: 20081117
  Transmission Date: 20090506
  Serious: No
  Sender: FDA-Public Use
  Company Number: None

PATIENT
  Age: 45 Year
  Sex: Male
  Weight: 83.9154 kg

DRUGS (1)
  1. SEPTOCAINE [Suspect]

REACTIONS (4)
  - AGEUSIA [None]
  - GLOSSODYNIA [None]
  - HYPOAESTHESIA ORAL [None]
  - NERVE INJURY [None]
